FAERS Safety Report 13071305 (Version 1)
Quarter: 2016Q4

REPORT INFORMATION
  Report Type: Report from Study
  Country: ES (occurrence: ES)
  Receive Date: 20161229
  Receipt Date: 20161229
  Transmission Date: 20170207
  Serious: Yes (Hospitalization)
  Sender: FDA-Public Use
  Company Number: ES-AMGEN-ESPSL2016171030

PATIENT
  Age: 64 Year
  Sex: Male

DRUGS (1)
  1. REPATHA [Suspect]
     Active Substance: EVOLOCUMAB
     Indication: PRODUCT USED FOR UNKNOWN INDICATION
     Dosage: 140 MG, UNK
     Route: 065

REACTIONS (5)
  - Abdominal distension [Unknown]
  - Pain in extremity [Unknown]
  - Oedema peripheral [Unknown]
  - Malaise [Unknown]
  - Oedema genital [Unknown]

NARRATIVE: CASE EVENT DATE: 20161201
